FAERS Safety Report 10617841 (Version 2)
Quarter: 2014Q4

REPORT INFORMATION
  Report Type: Spontaneous
  Country: AT (occurrence: AT)
  Receive Date: 20141201
  Receipt Date: 20141204
  Transmission Date: 20150529
  Serious: Yes (Hospitalization)
  Sender: FDA-Public Use
  Company Number: AT-B.I. PHARMACEUTICALS,INC./RIDGEFIELD-2014-BI-57257BE

PATIENT
  Age: 82 Year
  Sex: Male

DRUGS (5)
  1. PRADAXA [Suspect]
     Active Substance: DABIGATRAN ETEXILATE MESYLATE
     Indication: ATRIAL FIBRILLATION
     Dosage: 220 MG
     Route: 048
     Dates: start: 201304, end: 201411
  2. RAMIPRIL. [Concomitant]
     Active Substance: RAMIPRIL
     Indication: CARDIAC FAILURE
     Dosage: 125 MG
     Route: 048
  3. SPIRONO + FUROSEMID [Concomitant]
     Indication: CARDIAC FAILURE
     Dosage: DOSE PER APPLICATION AND DAILY DOSE: 25/40
     Route: 048
  4. EUTHYROX [Concomitant]
     Active Substance: LEVOTHYROXINE SODIUM
     Indication: HYPOTHYROIDISM
     Dosage: 75 MCG
     Route: 048
  5. HYDROXYUREA. [Concomitant]
     Active Substance: HYDROXYUREA
     Indication: THROMBOCYTOSIS
     Dosage: 1500 MG
     Route: 048

REACTIONS (1)
  - Intracardiac thrombus [Not Recovered/Not Resolved]

NARRATIVE: CASE EVENT DATE: 20141117
